FAERS Safety Report 8967057 (Version 1)
Quarter: 2012Q4

REPORT INFORMATION
  Report Type: 
  Country: SG (occurrence: SG)
  Receive Date: 20121217
  Receipt Date: 20121217
  Transmission Date: 20130627
  Serious: Yes (Hospitalization)
  Sender: FDA-Public Use
  Company Number: SG-ROXANE LABORATORIES, INC.-2012-RO-02564RO

PATIENT
  Age: 12 Year
  Sex: Male

DRUGS (3)
  1. CLARITHROMYCIN [Suspect]
     Indication: HELICOBACTER INFECTION
     Dosage: 1000 mg
  2. OMEPRAZOLE [Suspect]
     Indication: HELICOBACTER INFECTION
     Dosage: 40 mg
  3. AMOXICILLIN [Suspect]
     Indication: HELICOBACTER INFECTION
     Dosage: 1000 mg

REACTIONS (1)
  - Myositis [Recovered/Resolved]
